FAERS Safety Report 13573944 (Version 2)
Quarter: 2018Q1

REPORT INFORMATION
  Report Type: Spontaneous
  Country: AU (occurrence: AU)
  Receive Date: 20170523
  Receipt Date: 20180125
  Transmission Date: 20180508
  Serious: Yes (Life-Threatening, Other)
  Sender: FDA-Public Use
  Company Number: AU-TEVA-769402ISR

PATIENT
  Age: 15 Year
  Sex: Male
  Weight: 70 kg

DRUGS (8)
  1. PROMETHAZINE [Interacting]
     Active Substance: PROMETHAZINE\PROMETHAZINE HYDROCHLORIDE
     Indication: DEPRESSION
     Dosage: 500 MILLIGRAM DAILY; 500 MG
     Route: 065
  2. RAMIPRIL (BRAND UNSPECIFIED) [Interacting]
     Active Substance: RAMIPRIL
     Indication: ESSENTIAL HYPERTENSION
     Dosage: 100 MILLIGRAM DAILY; 100 MG
     Route: 065
  3. FLUOXETINE [Interacting]
     Active Substance: FLUOXETINE HYDROCHLORIDE
     Indication: DEPRESSION
     Dosage: 560 MILLIGRAM DAILY; 560 MG
     Route: 065
  4. LITHIUM (BRAND UNSPECIFIED) [Interacting]
     Active Substance: LITHIUM
     Indication: DEPRESSION
     Dosage: 500 MG
     Route: 065
  5. QUETIAPINE (BRAND UNSPECIFIED) [Suspect]
     Active Substance: QUETIAPINE
     Indication: DEPRESSION
     Dosage: 13.5 GRAM DAILY; 13.5 G (IMMEDIATE AND EXTENDED RELEASE)
     Route: 065
  6. AMLODIPINE [Interacting]
     Active Substance: AMLODIPINE BESYLATE
     Indication: ESSENTIAL HYPERTENSION
     Dosage: 250 MILLIGRAM DAILY; 290 MG
     Route: 065
  7. VENLAFAXINE [Interacting]
     Active Substance: VENLAFAXINE HYDROCHLORIDE
     Indication: DEPRESSION
     Dosage: 1.05 GRAM DAILY; 1.05 G
     Route: 065
  8. DESVENLAFAXINE (BRAND UNSPECIFIED) [Interacting]
     Active Substance: DESVENLAFAXINE
     Indication: DEPRESSION
     Dosage: 5.6 GRAM DAILY; 5.6 G
     Route: 065

REACTIONS (10)
  - Overdose [Unknown]
  - Hypoventilation [Unknown]
  - Paralysis [Unknown]
  - Hyperthermia [Unknown]
  - Muscle rigidity [Unknown]
  - Pupil fixed [Unknown]
  - Pyrexia [Unknown]
  - Vasoplegia syndrome [Recovered/Resolved]
  - Drug interaction [Unknown]
  - Serotonin syndrome [Unknown]
